FAERS Safety Report 6232492-X (Version None)
Quarter: 2009Q2

REPORT INFORMATION
  Report Type: 
  Country: None (occurrence: None)
  Receive Date: 20090615
  Receipt Date: 20090615
  Transmission Date: 20091009
  Serious: Yes (Other)
  Sender: FDA-Public Use
  Company Number: None

PATIENT
  Sex: Male
  Weight: 80.7403 kg

DRUGS (2)
  1. FENOFIBRATE [Suspect]
     Indication: HYPERCHOLESTEROLAEMIA
     Dosage: 145MG TAB  1 TAB IN AM ORAL
     Route: 048
     Dates: start: 20070101
  2. FENOFIBRATE [Suspect]
     Indication: HYPERTRIGLYCERIDAEMIA
     Dosage: 145MG TAB  1 TAB IN AM ORAL
     Route: 048
     Dates: start: 20070101

REACTIONS (7)
  - ABDOMINAL PAIN [None]
  - ASTHENIA [None]
  - FAECES DISCOLOURED [None]
  - FATIGUE [None]
  - MUSCLE SPASMS [None]
  - NAUSEA [None]
  - PRURITUS [None]
